FAERS Safety Report 6860415-9 (Version None)
Quarter: 2010Q3

REPORT INFORMATION
  Report Type: 
  Country: None (occurrence: None)
  Receive Date: 20100719
  Receipt Date: 20100719
  Transmission Date: 20110219
  Serious: Yes (Other)
  Sender: FDA-Public Use
  Company Number: None

PATIENT
  Sex: Male
  Weight: 72.5755 kg

DRUGS (1)
  1. ICY HOT MEDICATED ROLL MENTHOL 7.5% CHATTEM, INC. [Suspect]
     Indication: PRODUCT USED FOR UNKNOWN INDICATION
     Dosage: 7.5% APPLY UP TO 8 HRS TOP
     Route: 061
     Dates: start: 20100716, end: 20100716

REACTIONS (2)
  - APPLICATION SITE BURN [None]
  - BURNS THIRD DEGREE [None]
